FAERS Safety Report 16363642 (Version 1)
Quarter: 2019Q2

REPORT INFORMATION
  Report Type: Spontaneous
  Country: US (occurrence: US)
  Receive Date: 20190528
  Receipt Date: 20190528
  Transmission Date: 20190711
  Serious: Yes (Other)
  Sender: FDA-Public Use
  Company Number: US-ALEXION PHARMACEUTICALS INC.-A201907732

PATIENT
  Sex: Female

DRUGS (1)
  1. SOLIRIS [Suspect]
     Active Substance: ECULIZUMAB
     Indication: ATYPICAL HAEMOLYTIC URAEMIC SYNDROME
     Dosage: UNK UNK, Q2W
     Route: 042

REACTIONS (3)
  - Hypokalaemia [Unknown]
  - Oedema peripheral [Unknown]
  - Weight increased [Unknown]

NARRATIVE: CASE EVENT DATE: 201904
